FAERS Safety Report 6546176-1 (Version None)
Quarter: 2010Q1

REPORT INFORMATION
  Report Type: 
  Country: None (occurrence: None)
  Receive Date: 20100119
  Receipt Date: 20100104
  Transmission Date: 20100710
  Serious: Yes (Death, Hospitalization)
  Sender: FDA-Public Use
  Company Number: 2009AC000353

PATIENT
  Age: 90 Year
  Sex: Female

DRUGS (14)
  1. DIGOXIN [Suspect]
     Dosage: ;PO
     Route: 048
  2. BACTRIM [Concomitant]
  3. SENOKOT [Concomitant]
  4. ASPIRIN [Concomitant]
  5. CLOPIDOGREL [Concomitant]
  6. RIVASTIGMINE TARTRATE [Concomitant]
  7. COUMADIN [Concomitant]
  8. NITROGLYCERIN [Concomitant]
  9. ACETAMINOPHEN [Concomitant]
  10. DROPERIDOL [Concomitant]
  11. MAALOX [Concomitant]
  12. ALPRAZOLAM [Concomitant]
  13. CEPACOL LOZENGE [Concomitant]
  14. LORAZEPAM [Concomitant]

REACTIONS (50)
  - ACUTE CORONARY SYNDROME [None]
  - ANAEMIA [None]
  - ARRHYTHMIA [None]
  - BRADYCARDIA [None]
  - CACHEXIA [None]
  - CARDIAC FAILURE CONGESTIVE [None]
  - CARDIOMEGALY [None]
  - CARDIOMYOPATHY [None]
  - CHILLS [None]
  - CONFUSIONAL STATE [None]
  - DECUBITUS ULCER [None]
  - DEHYDRATION [None]
  - DELIRIUM [None]
  - DEMENTIA [None]
  - DEMENTIA ALZHEIMER'S TYPE [None]
  - DISEASE COMPLICATION [None]
  - DYSPNOEA [None]
  - ECONOMIC PROBLEM [None]
  - ESSENTIAL HYPERTENSION [None]
  - FAMILY STRESS [None]
  - GANGRENE [None]
  - HALLUCINATION [None]
  - HYPERHIDROSIS [None]
  - HYPOAESTHESIA [None]
  - HYPOGLYCAEMIA [None]
  - IMPAIRED HEALING [None]
  - LETHARGY [None]
  - LOBAR PNEUMONIA [None]
  - MALNUTRITION [None]
  - MULTIPLE INJURIES [None]
  - MYOCARDIAL INFARCTION [None]
  - NAUSEA [None]
  - NERVOUSNESS [None]
  - OSTEOARTHRITIS [None]
  - PAIN [None]
  - PERIPHERAL VASCULAR DISORDER [None]
  - PLEURAL EFFUSION [None]
  - RENAL FAILURE [None]
  - RESPIRATORY DISTRESS [None]
  - SEPSIS [None]
  - SOCIAL PROBLEM [None]
  - SOMNOLENCE [None]
  - SURGERY [None]
  - THERAPEUTIC AGENT TOXICITY [None]
  - TYPE 2 DIABETES MELLITUS [None]
  - UNEVALUABLE EVENT [None]
  - UNRESPONSIVE TO STIMULI [None]
  - URINARY TRACT INFECTION [None]
  - VOMITING [None]
  - WOUND INFECTION [None]
